FAERS Safety Report 6602571-3 (Version None)
Quarter: 2010Q1

REPORT INFORMATION
  Report Type: 
  Country: None (occurrence: None)
  Receive Date: 20100217
  Receipt Date: 20100205
  Transmission Date: 20100710
  Serious: Yes (Hospitalization, Other)
  Sender: FDA-Public Use
  Company Number: 1000011137

PATIENT
  Age: 52 Year
  Sex: Female
  Weight: 83.4619 kg

DRUGS (16)
  1. SAVELLA [Suspect]
     Indication: FIBROMYALGIA
     Dosage: 12.5 MG (12.5 MG, 1 IN 1 D), ORAL, 25 MG (12.5 MG, 2 IN 1 D) ORAL,  50 MG (25 MG, 2 IN 1 D), ORAL
     Route: 048
     Dates: start: 20090702, end: 20090702
  2. SAVELLA [Suspect]
     Indication: FIBROMYALGIA
     Dosage: 12.5 MG (12.5 MG, 1 IN 1 D), ORAL, 25 MG (12.5 MG, 2 IN 1 D) ORAL,  50 MG (25 MG, 2 IN 1 D), ORAL
     Route: 048
     Dates: start: 20090703, end: 20090704
  3. SAVELLA [Suspect]
     Indication: FIBROMYALGIA
     Dosage: 12.5 MG (12.5 MG, 1 IN 1 D), ORAL, 25 MG (12.5 MG, 2 IN 1 D) ORAL,  50 MG (25 MG, 2 IN 1 D), ORAL
     Route: 048
     Dates: start: 20090705, end: 20090708
  4. SAVELLA [Suspect]
     Indication: FIBROMYALGIA
     Dosage: 100 MG (50 MG, 2 IN 1 D), ORAL, 12.5 MG (12.5 MG, 1 IN 1 D), ORAL, 25 MG (12.5 MG, 2 IN 1 D), ORAL
     Route: 048
     Dates: start: 20090709, end: 20090729
  5. SAVELLA [Suspect]
     Indication: FIBROMYALGIA
     Dosage: 100 MG (50 MG, 2 IN 1 D), ORAL, 12.5 MG (12.5 MG, 1 IN 1 D), ORAL, 25 MG (12.5 MG, 2 IN 1 D), ORAL
     Route: 048
     Dates: start: 20090801, end: 20090801
  6. SAVELLA [Suspect]
     Indication: FIBROMYALGIA
     Dosage: 100 MG (50 MG, 2 IN 1 D), ORAL, 12.5 MG (12.5 MG, 1 IN 1 D), ORAL, 25 MG (12.5 MG, 2 IN 1 D), ORAL
     Route: 048
     Dates: start: 20090802, end: 20090803
  7. SAVELLA [Suspect]
     Indication: FIBROMYALGIA
     Dosage: 50 MG, 25 MG, 2 IN 1 D), ORAL, 25 MG (25 MG, 1 IN 1 D), ORAL, 12.5 MG (12.5 MG 1IN 1 D), ORAL
     Route: 048
     Dates: start: 20090804, end: 20090807
  8. SAVELLA [Suspect]
     Indication: FIBROMYALGIA
     Dosage: 50 MG, 25 MG, 2 IN 1 D), ORAL, 25 MG (25 MG, 1 IN 1 D), ORAL, 12.5 MG (12.5 MG 1IN 1 D), ORAL
     Route: 048
     Dates: start: 20090808, end: 20090810
  9. SAVELLA [Suspect]
     Indication: FIBROMYALGIA
     Dosage: 50 MG, 25 MG, 2 IN 1 D), ORAL, 25 MG (25 MG, 1 IN 1 D), ORAL, 12.5 MG (12.5 MG 1IN 1 D), ORAL
     Route: 048
     Dates: start: 20090811, end: 20090813
  10. CYMBALTA [Concomitant]
  11. XANAX [Concomitant]
  12. SYNTHROID [Concomitant]
  13. NEURONTIN [Concomitant]
  14. KLONOPIN [Concomitant]
  15. AMITRIPTYLINE HCL [Concomitant]
  16. DARVOCET [Concomitant]

REACTIONS (27)
  - AGITATION [None]
  - ALANINE AMINOTRANSFERASE DECREASED [None]
  - ARTERIOSCLEROSIS [None]
  - ASPARTATE AMINOTRANSFERASE DECREASED [None]
  - ASTHENIA [None]
  - BLOOD ALBUMIN DECREASED [None]
  - BLOOD CALCIUM DECREASED [None]
  - BLOOD CREATINE DECREASED [None]
  - BLOOD CREATINE PHOSPHOKINASE DECREASED [None]
  - BLOOD GLUCOSE INCREASED [None]
  - CONSTIPATION [None]
  - DECREASED APPETITE [None]
  - DYSPNOEA [None]
  - FATIGUE [None]
  - HEART RATE INCREASED [None]
  - HYPOKALAEMIA [None]
  - HYPOMAGNESAEMIA [None]
  - IRRITABILITY [None]
  - MIGRAINE [None]
  - MYOCARDIAL ISCHAEMIA [None]
  - NAUSEA [None]
  - NON-CARDIAC CHEST PAIN [None]
  - PALPITATIONS [None]
  - PROTEIN TOTAL DECREASED [None]
  - RENAL PAIN [None]
  - SCOLIOSIS [None]
  - SPINAL OSTEOARTHRITIS [None]
